FAERS Safety Report 19268182 (Version 3)
Quarter: 2021Q2

REPORT INFORMATION
  Report Type: Spontaneous
  Country: US (occurrence: US)
  Receive Date: 20210518
  Receipt Date: 20210603
  Transmission Date: 20210717
  Serious: No
  Sender: FDA-Public Use
  Company Number: US-APOTEX-2021AP010195

PATIENT
  Sex: Female

DRUGS (7)
  1. ATIVAN [Concomitant]
     Active Substance: LORAZEPAM
     Indication: WITHDRAWAL SYNDROME
  2. ATIVAN [Concomitant]
     Active Substance: LORAZEPAM
     Indication: SEIZURE
  3. VITAMIN D3 [Concomitant]
     Active Substance: CHOLECALCIFEROL
     Indication: SUPPLEMENTATION THERAPY
     Dosage: UNK UNK, QD
     Route: 048
  4. GUANFACINE EXTENDED RELEASE TABLET [Suspect]
     Active Substance: GUANFACINE
     Indication: DISTURBANCE IN ATTENTION
     Dosage: 2 MILLIGRAM, Q.H.S.
     Route: 065
     Dates: start: 2019
  5. GUANFACINE EXTENDED RELEASE TABLET [Suspect]
     Active Substance: GUANFACINE
     Indication: BRAIN INJURY
     Dosage: 1 MILLIGRAM, Q.H.S.
     Route: 065
     Dates: start: 2019
  6. GUANFACINE EXTENDED RELEASE TABLET [Suspect]
     Active Substance: GUANFACINE
     Indication: EPILEPSY
     Dosage: 1 MILLIGRAM, Q.O.D.
     Route: 065
     Dates: start: 2019
  7. ATIVAN [Concomitant]
     Active Substance: LORAZEPAM
     Indication: EPILEPSY
     Dosage: 0.5 MILLIGRAM, TID
     Route: 048

REACTIONS (10)
  - Agitation [Recovering/Resolving]
  - Heart rate irregular [Recovering/Resolving]
  - Irritability [Recovering/Resolving]
  - Withdrawal syndrome [Recovering/Resolving]
  - Lethargy [Recovering/Resolving]
  - Fatigue [Recovering/Resolving]
  - Sedation [Recovering/Resolving]
  - Cardiac valve disease [Recovering/Resolving]
  - Somnolence [Recovering/Resolving]
  - Blood iron decreased [Recovering/Resolving]
